FAERS Safety Report 7574733-2 (Version None)
Quarter: 2011Q2

REPORT INFORMATION
  Report Type: 
  Country: None (occurrence: None)
  Receive Date: 20110627
  Receipt Date: 20110617
  Transmission Date: 20111010
  Serious: Yes (Other)
  Sender: FDA-Public Use
  Company Number: PHHY2011DK53524

PATIENT
  Sex: Female

DRUGS (6)
  1. HERCEPTIN [Suspect]
     Dates: start: 20071217, end: 20080317
  2. CYCLOPHOSPHAMIDE [Suspect]
  3. TAXOTERE [Suspect]
     Dates: end: 20071128
  4. ANTIHISTAMINES [Suspect]
     Indication: PROPHYLAXIS
  5. METOPROLOL SUCCINATE [Concomitant]
     Dosage: 50 MG, UNK
  6. EPIRUBICIN [Suspect]

REACTIONS (11)
  - INFLAMMATION [None]
  - PRURITUS [None]
  - SKIN DISORDER [None]
  - MYALGIA [None]
  - VISUAL IMPAIRMENT [None]
  - ONYCHOMADESIS [None]
  - DISCOMFORT [None]
  - DIARRHOEA [None]
  - PAIN IN EXTREMITY [None]
  - FATIGUE [None]
  - SKIN EXFOLIATION [None]
